FAERS Safety Report 6343064-0 (Version None)
Quarter: 2009Q3

REPORT INFORMATION
  Report Type: 
  Country: None (occurrence: None)
  Receive Date: 20090908
  Receipt Date: 20090902
  Transmission Date: 20100115
  Serious: Yes (Other)
  Sender: FDA-Public Use
  Company Number: US-WYE-G04361609

PATIENT
  Sex: Male
  Weight: 85.4 kg

DRUGS (46)
  1. SIROLIMUS [Suspect]
     Indication: RENAL TRANSPLANT
     Route: 048
     Dates: start: 20071116, end: 20071116
  2. SIROLIMUS [Suspect]
     Route: 048
     Dates: start: 20071117, end: 20071127
  3. SIROLIMUS [Suspect]
     Route: 048
     Dates: start: 20071128, end: 20071204
  4. SIROLIMUS [Suspect]
     Route: 048
     Dates: start: 20071205, end: 20071212
  5. SIROLIMUS [Suspect]
     Route: 048
     Dates: start: 20071213, end: 20071220
  6. SIROLIMUS [Suspect]
     Route: 048
     Dates: start: 20071221, end: 20080214
  7. SIROLIMUS [Suspect]
     Route: 048
     Dates: start: 20080215, end: 20080220
  8. SIROLIMUS [Suspect]
     Route: 048
     Dates: start: 20080221, end: 20080317
  9. SIROLIMUS [Suspect]
     Route: 048
     Dates: start: 20080318, end: 20080501
  10. SIROLIMUS [Suspect]
     Route: 048
     Dates: start: 20080502, end: 20080520
  11. SIROLIMUS [Suspect]
     Route: 048
     Dates: start: 20080521, end: 20080605
  12. SIROLIMUS [Suspect]
     Route: 048
     Dates: start: 20080606, end: 20080609
  13. SIROLIMUS [Suspect]
     Route: 048
     Dates: start: 20080610, end: 20080701
  14. SIROLIMUS [Suspect]
     Route: 048
     Dates: start: 20080702, end: 20080729
  15. SIROLIMUS [Suspect]
     Route: 048
     Dates: start: 20080730, end: 20080902
  16. SIROLIMUS [Suspect]
     Route: 048
     Dates: start: 20080903, end: 20081121
  17. SIROLIMUS [Suspect]
     Route: 048
     Dates: start: 20081122, end: 20090108
  18. SIROLIMUS [Suspect]
     Route: 048
     Dates: start: 20090109, end: 20090409
  19. SIROLIMUS [Suspect]
     Route: 048
     Dates: start: 20090410
  20. THYMOGLOBULIN [Concomitant]
     Indication: KIDNEY TRANSPLANT REJECTION
     Route: 048
     Dates: start: 20070725, end: 20070728
  21. TACROLIMUS [Concomitant]
     Route: 048
     Dates: start: 20070719, end: 20070727
  22. TACROLIMUS [Concomitant]
     Route: 048
     Dates: start: 20070728, end: 20071115
  23. MYCOPHENOLATE MOFETIL [Concomitant]
     Dosage: 2000 MG TWICE A DAY
     Route: 048
     Dates: start: 20070719, end: 20071107
  24. MYCOPHENOLATE MOFETIL [Concomitant]
     Dosage: 1000 MG TWICE A DAY
     Route: 048
     Dates: start: 20071108, end: 20071231
  25. MYCOPHENOLATE MOFETIL [Concomitant]
     Route: 048
     Dates: start: 20080101
  26. METOPROLOL [Concomitant]
     Route: 048
     Dates: start: 20060101, end: 20070730
  27. METOPROLOL [Concomitant]
     Route: 048
     Dates: start: 20070731, end: 20070816
  28. METOPROLOL [Concomitant]
     Route: 048
     Dates: start: 20070817
  29. NORVASC [Concomitant]
     Route: 048
     Dates: start: 20060101
  30. CLONIDINE [Concomitant]
     Route: 048
     Dates: start: 20060101, end: 20070717
  31. CLONIDINE [Concomitant]
     Route: 048
     Dates: start: 20070726, end: 20070730
  32. LISINOPRIL [Concomitant]
     Route: 048
     Dates: end: 20070717
  33. DILTIAZEM [Concomitant]
     Route: 048
     Dates: start: 20070726, end: 20080317
  34. FUROSEMIDE [Concomitant]
     Route: 048
     Dates: start: 20070730, end: 20070806
  35. LESCOL [Concomitant]
     Route: 048
     Dates: start: 20070101, end: 20070717
  36. SIMVASTATIN [Concomitant]
     Route: 048
     Dates: start: 20070906, end: 20071231
  37. SIMVASTATIN [Concomitant]
     Route: 048
     Dates: start: 20080101, end: 20080317
  38. ATORVASTATIN [Concomitant]
     Route: 048
     Dates: start: 20080318, end: 20081015
  39. ATORVASTATIN [Concomitant]
     Route: 048
     Dates: start: 20081016
  40. HYDRALAZINE HCL [Concomitant]
     Route: 048
     Dates: start: 20080317
  41. PREDNISONE TAB [Concomitant]
     Route: 048
     Dates: start: 20070720, end: 20070730
  42. PREDNISONE TAB [Concomitant]
     Route: 048
     Dates: start: 20070731, end: 20070802
  43. PREDNISONE TAB [Concomitant]
     Route: 048
     Dates: start: 20070803, end: 20070820
  44. PREDNISONE TAB [Concomitant]
     Route: 048
     Dates: start: 20070821, end: 20071015
  45. PREDNISONE TAB [Concomitant]
     Route: 048
     Dates: start: 20071016, end: 20080811
  46. PREDNISONE TAB [Concomitant]
     Route: 048
     Dates: start: 20080812

REACTIONS (1)
  - PROSTATE CANCER [None]
